FAERS Safety Report 4985877-3 (Version None)
Quarter: 2006Q2

REPORT INFORMATION
  Report Type: 
  Country: None (occurrence: None)
  Receive Date: 20060419
  Receipt Date: 20060403
  Transmission Date: 20061013
  Serious: Yes (Hospitalization)
  Sender: FDA-Public Use
  Company Number: ES200604000932

PATIENT
  Sex: Female

DRUGS (4)
  1. FORTEO [Suspect]
     Indication: OSTEOPOROSIS
     Dosage: 20 UG, SUBCUTANEOUS
     Route: 058
     Dates: start: 20050901, end: 20060328
  2. IDEOS (CALCIUM CARBONATE, COLECALCIFEROL) [Concomitant]
  3. HEPARIN [Concomitant]
  4. FORTEO [Concomitant]

REACTIONS (4)
  - DYSPNOEA [None]
  - FALL [None]
  - PATELLA FRACTURE [None]
  - VOMITING [None]
